FAERS Safety Report 9157027 (Version 2)
Quarter: 2013Q2

REPORT INFORMATION
  Report Type: Spontaneous
  Country: US (occurrence: US)
  Receive Date: 20130312
  Receipt Date: 20130404
  Transmission Date: 20140414
  Serious: No
  Sender: FDA-Public Use
  Company Number: US-PFIZER INC-2013082148

PATIENT
  Age: 67 Year
  Sex: Female
  Weight: 86.17 kg

DRUGS (17)
  1. CHANTIX [Suspect]
     Indication: SMOKING CESSATION THERAPY
     Dosage: 0.5MG DAILY
     Route: 048
     Dates: start: 20130301, end: 201303
  2. CHANTIX [Suspect]
     Dosage: 1 MG, 2X/DAY
     Route: 048
     Dates: start: 201303
  3. IBUPROFEN [Concomitant]
     Indication: ARTHRITIS
     Dosage: 800 MG, 3X/DAY
  4. LANSOPRAZOLE [Concomitant]
     Indication: GASTROOESOPHAGEAL REFLUX DISEASE
     Dosage: 30MG DAILY
  5. PARAFON FORTE [Concomitant]
     Indication: MUSCLE SPASMS
     Dosage: 500 MG, AS NEEDED (UPTO FOUR TIMES A DAY)
  6. FUROSEMIDE [Concomitant]
     Indication: OEDEMA
     Dosage: 20MG DAILY
  7. SIMVASTATIN [Concomitant]
     Indication: BLOOD CHOLESTEROL INCREASED
     Dosage: 40MG DAILY
  8. COUMADIN [Concomitant]
     Indication: THROMBOSIS
     Dosage: 7.5MG DAILY (FOR 5 DAYS IN A WEEK) AND 10MG DAILY (FOR OTHER TWO DAYS IN WEEK)
  9. LYRICA [Concomitant]
     Indication: NEUROPATHY PERIPHERAL
     Dosage: 150 MG, 2X/DAY
  10. DIGOXIN [Concomitant]
     Indication: CARDIAC FAILURE CONGESTIVE
     Dosage: 125 UG DAILY
  11. LEVOTHYROXINE [Concomitant]
     Indication: HYPOTHYROIDISM
     Dosage: TWO TABLETS OF 112MCG DAILY
     Route: 048
  12. JANUVIA [Concomitant]
     Indication: DIABETES MELLITUS
     Dosage: 100MG DAILY
  13. CYMBALTA [Concomitant]
     Indication: DEPRESSION
     Dosage: 60MG DAILY
  14. ISOSORBIDE [Concomitant]
     Dosage: 30MG DAILY
  15. SINGULAIR [Concomitant]
     Indication: CHRONIC OBSTRUCTIVE PULMONARY DISEASE
     Dosage: 10MG DAILY
  16. TORSEMIDE [Concomitant]
     Dosage: 20MG DAILY
  17. CALCIUM [Concomitant]
     Dosage: 500 MG, 2X/DAY

REACTIONS (1)
  - Tremor [Not Recovered/Not Resolved]
